FAERS Safety Report 5762131-3 (Version None)
Quarter: 2008Q2

REPORT INFORMATION
  Report Type: 
  Country: None (occurrence: None)
  Receive Date: 20080604
  Receipt Date: 20080527
  Transmission Date: 20081010
  Serious: Yes (Hospitalization, Other)
  Sender: FDA-Public Use
  Company Number: 2008JP002024

PATIENT
  Age: 63 Year
  Sex: Female
  Weight: 45 kg

DRUGS (4)
  1. PROGRAF [Suspect]
     Indication: RHEUMATOID ARTHRITIS
     Dosage: 3 MG, ORAL
     Route: 048
     Dates: start: 20080321, end: 20080409
  2. CELECOXIB (CELECOXIB) FORMULATION UNKNOWN [Concomitant]
  3. ALLOID G (SODIUM ALGINATE) FORMULATION UNKNOWN [Concomitant]
  4. PREDNISOLONE (PREDNSIOLONE) FORMULATION UNKNOWN [Concomitant]

REACTIONS (6)
  - ATELECTASIS [None]
  - PERICARDIAL EFFUSION [None]
  - PNEUMONIA BACTERIAL [None]
  - SEROSITIS [None]
  - URINE OUTPUT DECREASED [None]
  - VASCULITIS [None]
